FAERS Safety Report 17312302 (Version 2)
Quarter: 2020Q3

REPORT INFORMATION
  Report Type: Spontaneous
  Country: JP (occurrence: JP)
  Receive Date: 20200123
  Receipt Date: 20200702
  Transmission Date: 20201102
  Serious: Yes (Other)
  Sender: FDA-Public Use
  Company Number: JP-TAKEDA-2019TJP030360

PATIENT
  Age: 74 Year
  Sex: Male
  Weight: 56.2 kg

DRUGS (2)
  1. NESINA [Suspect]
     Active Substance: ALOGLIPTIN BENZOATE
     Indication: TYPE 2 DIABETES MELLITUS
     Dosage: 25 MILLIGRAM, QD
     Route: 048
     Dates: start: 201701, end: 201711
  2. METFORMIN HYDROCHLORIDE. [Concomitant]
     Active Substance: METFORMIN HYDROCHLORIDE
     Indication: TYPE 2 DIABETES MELLITUS
     Dosage: 250 MILLIGRAM, BID
     Route: 048
     Dates: start: 201701

REACTIONS (1)
  - Pemphigoid [Unknown]

NARRATIVE: CASE EVENT DATE: 201705
